FAERS Safety Report 14787174 (Version 1)
Quarter: 2018Q2

REPORT INFORMATION
  Report Type: Spontaneous
  Country: US (occurrence: US)
  Receive Date: 20180421
  Receipt Date: 20180421
  Transmission Date: 20180711
  Serious: Yes (Other)
  Sender: FDA-Public Use
  Company Number: US-NOVOPROD-595623

PATIENT
  Age: 69 Year
  Sex: Female

DRUGS (1)
  1. NOVOLOG MIX 70/30 [Suspect]
     Active Substance: INSULIN ASPART
     Indication: TYPE 2 DIABETES MELLITUS
     Dosage: 18 U, UNK
     Route: 058
     Dates: end: 201711

REACTIONS (3)
  - Weight increased [Recovered/Resolved]
  - Insulin resistance [Not Recovered/Not Resolved]
  - Aortic valve calcification [Unknown]

NARRATIVE: CASE EVENT DATE: 201711
